FAERS Safety Report 7552945-1 (Version None)
Quarter: 2011Q2

REPORT INFORMATION
  Report Type: 
  Country: None (occurrence: None)
  Receive Date: 20110616
  Receipt Date: 20110608
  Transmission Date: 20111010
  Serious: Yes (Hospitalization)
  Sender: FDA-Public Use
  Company Number: FR-PFIZER INC-FR-WYE-H06026708

PATIENT
  Age: 81 Year
  Sex: Female

DRUGS (20)
  1. FORLAX [Concomitant]
     Dosage: UNK
     Route: 065
     Dates: end: 20080812
  2. CORDARONE [Suspect]
     Indication: ATRIAL FIBRILLATION
     Dosage: 200.0 MG, 5X/WK
     Route: 048
     Dates: end: 20080812
  3. ZYVOX [Suspect]
     Indication: OSTEITIS
     Dosage: 600.0 MG, 2X/DAY
     Route: 048
     Dates: start: 20080722, end: 20080806
  4. LOVENOX [Suspect]
     Indication: THROMBOSIS PROPHYLAXIS
     Dosage: 4000.0 IU, 1X/DAY
     Route: 058
     Dates: end: 20080807
  5. FONZYLANE [Concomitant]
     Dosage: UNK
     Route: 065
     Dates: end: 20080814
  6. LEVOTHYROXINE SODIUM [Concomitant]
     Dosage: UNK
     Route: 065
     Dates: start: 20080801
  7. LANSOPRAZOLE [Suspect]
     Dosage: 15.0 MG, 1X/DAY
     Route: 048
     Dates: end: 20080805
  8. NICARDIPINE HCL [Suspect]
     Indication: HYPERTENSION
     Dosage: UNKNOWN
     Route: 048
     Dates: end: 20080814
  9. PRIMPERAN TAB [Concomitant]
     Dosage: UNK
     Route: 065
     Dates: end: 20080814
  10. POTASSIUM CHLORIDE [Concomitant]
     Dosage: UNK
     Route: 065
     Dates: end: 20080812
  11. TARGOCID [Concomitant]
     Dosage: UNK
     Route: 065
     Dates: start: 20080801
  12. FUCIDINE CAP [Suspect]
     Indication: OSTEITIS
     Dosage: 250.0 MG, 2X/DAY
     Route: 048
     Dates: start: 20080722, end: 20080806
  13. DOMPERIDONE [Concomitant]
     Dosage: UNK
     Route: 065
     Dates: end: 20080812
  14. LEVOTHYROXINE SODIUM [Concomitant]
     Dosage: UNK
     Route: 065
     Dates: end: 20080814
  15. DITROPAN [Concomitant]
     Dosage: UNK
     Route: 065
     Dates: end: 20080812
  16. GLUCOSE [Concomitant]
     Dosage: UNK
     Dates: end: 20080814
  17. MORPHINE SULFATE [Concomitant]
     Dosage: UNK
     Route: 058
  18. POTASSIUM CHLORIDE [Concomitant]
     Dosage: UNK
     Route: 065
     Dates: start: 20080801
  19. TARGOCID [Concomitant]
     Dosage: UNK
     Route: 065
     Dates: end: 20080814
  20. LASIX [Suspect]
     Indication: HYPERTENSION
     Dosage: 20.0 MG, 1X/DAY
     Route: 048
     Dates: end: 20080812

REACTIONS (2)
  - THROMBOCYTOPENIA [None]
  - JAUNDICE CHOLESTATIC [None]
